FAERS Safety Report 12166275 (Version 9)
Quarter: 2016Q3

REPORT INFORMATION
  Report Type: Report from Study
  Country: CA (occurrence: CA)
  Receive Date: 20160309
  Receipt Date: 20160801
  Transmission Date: 20161109
  Serious: Yes (Other)
  Sender: FDA-Public Use
  Company Number: PHHY2016CA030850

PATIENT
  Sex: Male

DRUGS (7)
  1. PRAMOX HC [Concomitant]
     Indication: PRODUCT USED FOR UNKNOWN INDICATION
     Dosage: UNK
     Route: 065
  2. MOMETASONE [Concomitant]
     Active Substance: MOMETASONE
     Indication: PRODUCT USED FOR UNKNOWN INDICATION
     Route: 065
  3. PROTOPIC [Concomitant]
     Active Substance: TACROLIMUS
     Indication: PRODUCT USED FOR UNKNOWN INDICATION
     Route: 065
  4. KENALOG                            /00806701/ [Concomitant]
     Active Substance: SALICYLIC ACID\TRIAMCINOLONE ACETONIDE
     Indication: PRODUCT USED FOR UNKNOWN INDICATION
     Route: 065
  5. CLOBETASOL [Concomitant]
     Active Substance: CLOBETASOL
     Indication: PRODUCT USED FOR UNKNOWN INDICATION
     Route: 065
  6. ELIDEL [Concomitant]
     Active Substance: PIMECROLIMUS
     Indication: PRODUCT USED FOR UNKNOWN INDICATION
     Route: 065
  7. CICLOSPORIN [Suspect]
     Active Substance: CYCLOSPORINE
     Indication: CHRONIC SPONTANEOUS URTICARIA
     Dosage: UNK
     Route: 048

REACTIONS (12)
  - Dermatitis atopic [Unknown]
  - Hypertension [Unknown]
  - Idiopathic urticaria [Unknown]
  - Insomnia [Unknown]
  - Product use issue [Unknown]
  - Nodule [Unknown]
  - Stress [Unknown]
  - Renal impairment [Unknown]
  - Pruritus [Unknown]
  - Rash [Unknown]
  - Skin sensitisation [Unknown]
  - Urticaria [Unknown]
